FAERS Safety Report 10182942 (Version 1)
Quarter: 2014Q2

REPORT INFORMATION
  Report Type: Spontaneous
  Country: BE (occurrence: BE)
  Receive Date: 20140520
  Receipt Date: 20140520
  Transmission Date: 20141212
  Serious: Yes (Disabling)
  Sender: FDA-Public Use
  Company Number: BE-PFIZER INC-2014134446

PATIENT
  Age: 61 Year
  Sex: Male
  Weight: 87 kg

DRUGS (17)
  1. ZALDIAR [Concomitant]
  2. NOBITEN [Concomitant]
  3. LIPITOR [Concomitant]
  4. RASILEZ [Concomitant]
  5. MOXONIDINE [Concomitant]
  6. MONTELUKAST [Concomitant]
  7. PRAZEPAM [Concomitant]
  8. TRAZOLAN [Concomitant]
  9. ALDACTONE [Suspect]
     Indication: HYPERTENSION
     Dosage: 25 MG, DAILY
     Route: 048
     Dates: start: 201303
  10. ALDACTONE [Suspect]
     Dosage: 50 MG, DAILY
     Route: 048
     Dates: start: 20130817
  11. D-CURE [Concomitant]
  12. ASAFLOW [Concomitant]
  13. SIPRALEXA [Concomitant]
  14. CAMCOLIT [Concomitant]
  15. XANAX [Concomitant]
  16. VASEXTEN [Concomitant]
  17. CALCIUM CARBONATE [Concomitant]

REACTIONS (1)
  - Dysphonia [Not Recovered/Not Resolved]
